FAERS Safety Report 9241738 (Version 1)
Quarter: 2013Q2

REPORT INFORMATION
  Report Type: Spontaneous
  Country: US (occurrence: US)
  Receive Date: 20130419
  Receipt Date: 20130419
  Transmission Date: 20140414
  Serious: No
  Sender: FDA-Public Use
  Company Number: US-009507513-1304USA008611

PATIENT
  Sex: Male

DRUGS (4)
  1. VICTRELIS [Suspect]
     Indication: HEPATITIS C
     Dosage: UNK
     Dates: start: 20130319, end: 20130327
  2. REBETOL [Suspect]
     Indication: HEPATITIS C
     Dosage: 1200 MG
  3. REBETOL [Suspect]
     Dosage: 400 MG
  4. PEGASYS [Suspect]
     Indication: HEPATITIS C
     Dosage: UNK

REACTIONS (6)
  - Blood disorder [Unknown]
  - Skin ulcer [Unknown]
  - Constipation [Unknown]
  - Renal pain [Unknown]
  - Dyspnoea [Unknown]
  - Fatigue [Unknown]
